FAERS Safety Report 7832639-5 (Version None)
Quarter: 2011Q4

REPORT INFORMATION
  Report Type: 
  Country: None (occurrence: None)
  Receive Date: 20111024
  Receipt Date: 20111015
  Transmission Date: 20120403
  Serious: No
  Sender: FDA-Public Use
  Company Number: US-BIOGENIDEC-2011BI035751

PATIENT
  Age: 34 Year
  Sex: Male

DRUGS (2)
  1. BIBYRD (NOS) [Concomitant]
     Indication: STRESS
     Dates: start: 20110801, end: 20110901
  2. TYSABRI [Suspect]
     Indication: MULTIPLE SCLEROSIS
     Route: 042
     Dates: start: 20110607

REACTIONS (2)
  - HYPOAESTHESIA [None]
  - THINKING ABNORMAL [None]
